FAERS Safety Report 6779457-7 (Version None)
Quarter: 2010Q2

REPORT INFORMATION
  Report Type: 
  Country: None (occurrence: None)
  Receive Date: 20100618
  Receipt Date: 20100615
  Transmission Date: 20101027
  Serious: Yes (Hospitalization)
  Sender: FDA-Public Use
  Company Number: US-SANOFI-AVENTIS-2010SA026739

PATIENT
  Age: 60 Year
  Sex: Male

DRUGS (5)
  1. PLAVIX [Suspect]
     Route: 048
     Dates: start: 19920401, end: 20100401
  2. PLAVIX [Suspect]
     Indication: MYOCARDIAL INFARCTION
     Route: 048
     Dates: start: 19920401, end: 20100401
  3. OMEPRAZOLE [Concomitant]
     Route: 048
  4. PROTONIX [Concomitant]
     Route: 048
  5. FLAXSEED OIL [Concomitant]
     Route: 065

REACTIONS (3)
  - CARDIAC DISORDER [None]
  - IN-STENT CORONARY ARTERY RESTENOSIS [None]
  - MYOCARDIAL INFARCTION [None]
